FAERS Safety Report 20788226 (Version 1)
Quarter: 2022Q2

REPORT INFORMATION
  Report Type: Spontaneous
  Country: US (occurrence: US)
  Receive Date: 20220505
  Receipt Date: 20220505
  Transmission Date: 20220721
  Serious: No
  Sender: FDA-Public Use
  Company Number: US-SANOFI-01086331

PATIENT
  Age: 50 Year
  Sex: Female

DRUGS (1)
  1. LANTUS SOLOSTAR [Suspect]
     Active Substance: INSULIN GLARGINE
     Indication: Type 2 diabetes mellitus
     Dosage: DRUG STRUCTURE DOSAGE : 92 UNITS, 96 UNITS DRUG INTERVAL DOSAGE : IN THE MORNING, AT BEDTIME DRUG TR

REACTIONS (2)
  - Product use issue [Unknown]
  - Expired product administered [Unknown]
